FAERS Safety Report 14297882 (Version 2)
Quarter: 2017Q4

REPORT INFORMATION
  Report Type: Spontaneous
  Country: FI (occurrence: FI)
  Receive Date: 20171218
  Receipt Date: 20171228
  Transmission Date: 20180321
  Serious: Yes (Life-Threatening, Other)
  Sender: FDA-Public Use
  Company Number: FI-PFIZER INC-2017538545

PATIENT
  Age: 61 Year
  Sex: Female

DRUGS (9)
  1. T4 [Concomitant]
     Active Substance: LEVOTHYROXINE
     Dosage: UNK
     Route: 048
  2. METRONIDAZOLE. [Suspect]
     Active Substance: METRONIDAZOLE
     Indication: SEPSIS
     Dosage: 500 MG, 3X/DAY
     Route: 042
  3. T4 [Concomitant]
     Active Substance: LEVOTHYROXINE
     Indication: MYXOEDEMA
     Dosage: 500 UG, UNK
     Route: 042
  4. PIPERACILLIN/TAZOBACTAM [Suspect]
     Active Substance: PIPERACILLIN SODIUM\TAZOBACTAM SODIUM
     Indication: SEPSIS
     Dosage: 4 G, 3X/DAY
     Route: 042
  5. T3 [Concomitant]
     Active Substance: LIOTHYRONINE SODIUM
     Dosage: UNK
     Route: 048
  6. CEFUROXIME. [Suspect]
     Active Substance: CEFUROXIME
     Indication: SEPSIS
     Dosage: 1.5 G, 3X/DAY
     Route: 042
  7. T4 [Concomitant]
     Active Substance: LEVOTHYROXINE
     Dosage: 100 UG, 1X/DAY
     Route: 042
  8. T3 [Concomitant]
     Active Substance: LIOTHYRONINE SODIUM
     Indication: MYXOEDEMA
     Dosage: 5 UG, 3X/DAY
     Route: 042
  9. PIPERACILLIN/TAZOBACTAM [Suspect]
     Active Substance: PIPERACILLIN SODIUM\TAZOBACTAM SODIUM
     Dosage: 4 G, 3X/DAY
     Route: 042

REACTIONS (3)
  - Clostridium difficile infection [Recovered/Resolved]
  - Drug ineffective [None]
  - Probiotic therapy [None]
